FAERS Safety Report 24697290 (Version 2)
Quarter: 2024Q4

REPORT INFORMATION
  Report Type: Spontaneous
  Country: CN (occurrence: CN)
  Receive Date: 20241204
  Receipt Date: 20241211
  Transmission Date: 20250115
  Serious: Yes (Hospitalization, Disabling)
  Sender: NOVARTIS
  Company Number: CN-002147023-NVSC2024CN228953

PATIENT
  Age: 87 Year
  Sex: Female
  Weight: 43 kg

DRUGS (2)
  1. ENTRESTO [Suspect]
     Active Substance: SACUBITRIL\VALSARTAN
     Indication: Cardiac failure
     Dosage: 50 MG, BID
     Route: 048
     Dates: start: 20241115, end: 20241120
  2. ENTRESTO [Suspect]
     Active Substance: SACUBITRIL\VALSARTAN
     Indication: Hypertension

REACTIONS (3)
  - Renal impairment [Not Recovered/Not Resolved]
  - Cardiac disorder [Unknown]
  - Renal failure [Unknown]

NARRATIVE: CASE EVENT DATE: 20241115
